FAERS Safety Report 19794794 (Version 2)
Quarter: 2021Q3

REPORT INFORMATION
  Report Type: Report from Study
  Country: CA (occurrence: CA)
  Receive Date: 20210906
  Receipt Date: 20210909
  Transmission Date: 20211014
  Serious: Yes (Death, Hospitalization, Other)
  Sender: FDA-Public Use
  Company Number: CA-SHIRE-CA201912728AA

PATIENT
  Age: 51 Year
  Sex: Male

DRUGS (2)
  1. GAMMAGARD [Concomitant]
     Active Substance: HUMAN IMMUNOGLOBULIN G
     Indication: PRODUCT USED FOR UNKNOWN INDICATION
     Dosage: UNK
     Dates: start: 20160101, end: 20180820
  2. CUVITRU [Suspect]
     Active Substance: HUMAN IMMUNOGLOBULIN G
     Indication: SECONDARY IMMUNODEFICIENCY
     Dosage: 8 GRAM, 1X/WEEK
     Route: 058
     Dates: start: 20180905, end: 20200822

REACTIONS (5)
  - Renal failure [Fatal]
  - Neoplasm malignant [Fatal]
  - Kidney infection [Unknown]
  - Anaemia [Unknown]
  - Asthenia [Fatal]

NARRATIVE: CASE EVENT DATE: 20200822
